FAERS Safety Report 23723181 (Version 1)
Quarter: 2024Q2

REPORT INFORMATION
  Report Type: Spontaneous
  Country: FR (occurrence: FR)
  Receive Date: 20240409
  Receipt Date: 20240409
  Transmission Date: 20240716
  Serious: Yes (Other)
  Sender: FDA-Public Use
  Company Number: None

PATIENT
  Age: 61 Year
  Sex: Male
  Weight: 90 kg

DRUGS (1)
  1. KEYTRUDA [Suspect]
     Active Substance: PEMBROLIZUMAB
     Indication: Rectal cancer recurrent
     Route: 042
     Dates: start: 20221223, end: 20231116

REACTIONS (4)
  - Lichen planus [Recovering/Resolving]
  - Scleritis [Recovering/Resolving]
  - Behcet^s syndrome [Recovering/Resolving]
  - Behcet^s syndrome [Recovering/Resolving]

NARRATIVE: CASE EVENT DATE: 20231111
